FAERS Safety Report 14286371 (Version 1)
Quarter: 2017Q4

REPORT INFORMATION
  Report Type: Spontaneous
  Country: NO (occurrence: NO)
  Receive Date: 20171214
  Receipt Date: 20171214
  Transmission Date: 20180321
  Serious: Yes (Hospitalization)
  Sender: FDA-Public Use
  Company Number: PHHY2017NO180055

PATIENT
  Sex: Male

DRUGS (1)
  1. EBETREX [Suspect]
     Active Substance: METHOTREXATE SODIUM
     Indication: RHEUMATOID ARTHRITIS
     Dosage: 20 MG, QW
     Route: 058
     Dates: start: 20110512

REACTIONS (9)
  - Bone abscess [Unknown]
  - Pain [Unknown]
  - Abscess neck [Unknown]
  - Malaise [Unknown]
  - Multiple organ dysfunction syndrome [Unknown]
  - Vision blurred [Not Recovered/Not Resolved]
  - Back pain [Unknown]
  - Poisoning [Unknown]
  - Brain stem stroke [Unknown]

NARRATIVE: CASE EVENT DATE: 2014
